FAERS Safety Report 4322052-X (Version None)
Quarter: 2004Q1

REPORT INFORMATION
  Report Type: 
  Country: None (occurrence: None)
  Receive Date: 20040319
  Receipt Date: 20040304
  Transmission Date: 20041129
  Serious: Yes (Other)
  Sender: FDA-Public Use
  Company Number: 2004030006 (0)

PATIENT
  Age: 13 Month
  Sex: Male
  Weight: 9.9791 kg

DRUGS (2)
  1. ASTELIN [Suspect]
     Indication: UPPER RESPIRATORY TRACT INFECTION
     Dosage: 1 SPRAY EACH NOSTRIL X1
     Dates: start: 20040301, end: 20040301
  2. BROVEX (BROMPHENIRAMINE) [Suspect]
     Indication: UPPER RESPIRATORY TRACT INFECTION
     Dosage: ONE DOSE
     Dates: start: 20040301, end: 20040301

REACTIONS (2)
  - CONVULSION [None]
  - INTENTIONAL MISUSE [None]
